FAERS Safety Report 18607221 (Version 1)
Quarter: 2020Q4

REPORT INFORMATION
  Report Type: Other
  Country: BD (occurrence: BD)
  Receive Date: 20201211
  Receipt Date: 20201211
  Transmission Date: 20210114
  Serious: Yes (Death, Hospitalization)
  Sender: FDA-Public Use
  Company Number: BD-ROCHE-2731154

PATIENT
  Age: 62 Year
  Sex: Female

DRUGS (1)
  1. AVASTIN [Suspect]
     Active Substance: BEVACIZUMAB
     Indication: OVARIAN CANCER
     Dosage: DOSE: 400 UNIT NOTE REPORTED
     Route: 065

REACTIONS (2)
  - Vomiting [Fatal]
  - Pyrexia [Fatal]
